FAERS Safety Report 5557288-3 (Version None)
Quarter: 2007Q4

REPORT INFORMATION
  Report Type: 
  Country: None (occurrence: None)
  Receive Date: 20071214
  Receipt Date: 20071210
  Transmission Date: 20080405
  Serious: Yes (Other)
  Sender: FDA-Public Use
  Company Number: AU-BRISTOL-MYERS SQUIBB COMPANY-13956834

PATIENT
  Age: 81 Year
  Sex: Male

DRUGS (2)
  1. AVAPRO [Suspect]
     Route: 048
  2. IRBESARTAN + HYDROCHLOROTHIAZIDE [Suspect]

REACTIONS (5)
  - COLON CANCER [None]
  - HAEMORRHAGE [None]
  - INSOMNIA [None]
  - IRON DEFICIENCY ANAEMIA [None]
  - RED BLOOD CELL COUNT DECREASED [None]
